FAERS Safety Report 9501625 (Version 2)
Quarter: 2014Q1

REPORT INFORMATION
  Report Type: Spontaneous
  Country: US (occurrence: US)
  Receive Date: 20130905
  Receipt Date: 20140320
  Transmission Date: 20141002
  Serious: Yes (Hospitalization, Other)
  Sender: FDA-Public Use
  Company Number: US-BAYER-2013-104440

PATIENT
  Age: 39 Year
  Sex: Female
  Weight: 78.91 kg

DRUGS (3)
  1. MIRENA [Suspect]
     Indication: CONTRACEPTION
     Dosage: 20 MCG/24HR, CONT
     Route: 015
     Dates: start: 20081118, end: 20090124
  2. METFORMIN [Concomitant]
     Dosage: 500 MG, BID
     Dates: start: 20081021, end: 20090123
  3. ACCUPRIL [Concomitant]
     Dosage: 5 MG, QD
     Dates: start: 20081021, end: 20090123

REACTIONS (12)
  - Uterine perforation [None]
  - Abdominal pain lower [None]
  - Vulvovaginal pain [None]
  - Device dislocation [None]
  - Injury [None]
  - Medical device pain [None]
  - Cellulitis [None]
  - Incision site pain [None]
  - Insomnia [None]
  - Depression [None]
  - Anxiety [None]
  - Device issue [None]
